FAERS Safety Report 4440387-7 (Version None)
Quarter: 2004Q3

REPORT INFORMATION
  Report Type: 
  Country: None (occurrence: None)
  Receive Date: 20040903
  Receipt Date: 20040723
  Transmission Date: 20050211
  Serious: Yes (Other)
  Sender: FDA-Public Use
  Company Number: PHBS2004JP09911

PATIENT
  Age: 77 Year
  Sex: Female

DRUGS (7)
  1. LAMISIL [Suspect]
     Indication: NAIL TINEA
     Dosage: 125 MG/D
     Route: 048
     Dates: start: 20040616, end: 20040723
  2. LIPOVAS ^BANYU^ [Concomitant]
     Dosage: 5 MG/D
     Route: 048
     Dates: start: 20040512
  3. ATELEC [Concomitant]
     Dosage: 10 MG/D
     Route: 048
     Dates: start: 20040512
  4. JUVELA [Concomitant]
     Dosage: 200 MG/D
     Route: 048
     Dates: start: 20040512
  5. TAKEPRON [Concomitant]
     Dosage: 15 MG/D
     Route: 048
     Dates: start: 20040610
  6. BLADDERON [Concomitant]
     Dosage: 200 MG/D
     Route: 048
     Dates: start: 20040610
  7. CEROCRAL [Concomitant]
     Dosage: 20 MG/D
     Route: 048
     Dates: start: 20040610

REACTIONS (8)
  - ALANINE AMINOTRANSFERASE INCREASED [None]
  - ASPARTATE AMINOTRANSFERASE INCREASED [None]
  - BLOOD ALKALINE PHOSPHATASE INCREASED [None]
  - BLOOD LACTATE DEHYDROGENASE INCREASED [None]
  - GAMMA-GLUTAMYLTRANSFERASE INCREASED [None]
  - HEPATIC FUNCTION ABNORMAL [None]
  - LOSS OF CONSCIOUSNESS [None]
  - TRANSIENT ISCHAEMIC ATTACK [None]
